FAERS Safety Report 8422319-X (Version None)
Quarter: 2012Q2

REPORT INFORMATION
  Report Type: 
  Country: None (occurrence: None)
  Receive Date: 20120608
  Receipt Date: 20120604
  Transmission Date: 20120825
  Serious: Yes (Other)
  Sender: FDA-Public Use
  Company Number: FR-ROCHE-1076095

PATIENT
  Age: 43 Year
  Sex: Male

DRUGS (4)
  1. COPEGUS [Suspect]
     Indication: HEPATITIS C
     Route: 048
     Dates: start: 20120315
  2. VALIUM [Concomitant]
     Indication: ALCOHOLISM
     Route: 065
  3. PEGASYS [Suspect]
     Indication: HEPATITIS C
     Route: 058
     Dates: start: 20120315
  4. HAVLANE [Concomitant]
     Route: 065

REACTIONS (2)
  - TUBERCULOSIS [None]
  - DYSURIA [None]
